FAERS Safety Report 10644862 (Version 1)
Quarter: 2014Q4

REPORT INFORMATION
  Report Type: Spontaneous
  Country: US (occurrence: US)
  Receive Date: 20141211
  Receipt Date: 20141211
  Transmission Date: 20150529
  Serious: No
  Sender: FDA-Public Use
  Company Number: US-EMD SERONO-8001410

PATIENT
  Sex: Female

DRUGS (2)
  1. REBIF [Suspect]
     Active Substance: INTERFERON BETA-1A
     Indication: MULTIPLE SCLEROSIS
  2. NOVOCAIN [Concomitant]
     Active Substance: PROCAINE HYDROCHLORIDE
     Indication: CHEMOTHERAPY

REACTIONS (3)
  - Neutralising antibodies positive [Unknown]
  - Drug ineffective [Unknown]
  - Multiple sclerosis relapse [Unknown]
